FAERS Safety Report 4958454-8 (Version None)
Quarter: 2006Q1

REPORT INFORMATION
  Report Type: 
  Country: None (occurrence: None)
  Receive Date: 20060330
  Receipt Date: 20060321
  Transmission Date: 20060701
  Serious: Yes (Hospitalization)
  Sender: FDA-Public Use
  Company Number: PL-ABBOTT-06P-129-0328650-00

PATIENT
  Weight: 45 kg

DRUGS (4)
  1. KLACID [Suspect]
     Indication: GASTRITIS
     Route: 048
     Dates: start: 20060110, end: 20060111
  2. KLACID [Suspect]
     Indication: DUODENITIS
  3. PANTOPRAZOLE [Concomitant]
     Indication: DRUG USE FOR UNKNOWN INDICATION
     Route: 048
     Dates: start: 20060105
  4. AMOXICILLIN TRIHYDRATE [Concomitant]
     Indication: DRUG USE FOR UNKNOWN INDICATION
     Route: 048
     Dates: start: 20060109

REACTIONS (4)
  - DYSPNOEA [None]
  - HYPOAESTHESIA [None]
  - MUSCLE SPASMS [None]
  - RASH [None]
